FAERS Safety Report 7242737-5 (Version None)
Quarter: 2011Q1

REPORT INFORMATION
  Report Type: 
  Country: None (occurrence: None)
  Receive Date: 20110125
  Receipt Date: 20110120
  Transmission Date: 20110831
  Serious: Yes (Death)
  Sender: FDA-Public Use
  Company Number: US-ASTELLAS-2011US000269

PATIENT

DRUGS (6)
  1. ZOCOR [Concomitant]
     Indication: BLOOD CHOLESTEROL
     Dosage: 20 MG, UID/QD
     Route: 065
  2. CELLCEPT [Concomitant]
     Indication: HEART TRANSPLANT
     Dosage: 1000 MG, BID
     Route: 065
  3. FYNTHROID [Concomitant]
     Indication: THYROID DISORDER
     Dosage: 125 UG, UID/QD
     Route: 065
  4. MAG-SR [Concomitant]
     Indication: HEART TRANSPLANT
     Dosage: 84 MG, TID
     Route: 065
  5. PROGRAF [Suspect]
     Indication: HEART TRANSPLANT
     Dosage: 2 MG IN THE AM AND 1.5 MG IN THE PM
     Route: 065
     Dates: start: 20010101, end: 20101101
  6. ASPIRIN [Concomitant]
     Indication: HEART TRANSPLANT
     Dosage: 81 MG, UID/QD
     Route: 065

REACTIONS (1)
  - LIP AND/OR ORAL CAVITY CANCER [None]
